FAERS Safety Report 5739061-6 (Version None)
Quarter: 2008Q2

REPORT INFORMATION
  Report Type: 
  Country: None (occurrence: None)
  Receive Date: 20080515
  Receipt Date: 20080508
  Transmission Date: 20081010
  Serious: Yes (Hospitalization)
  Sender: FDA-Public Use
  Company Number: DE-ABBOTT-08P-062-0451275-00

PATIENT
  Age: 9 Month
  Sex: Male

DRUGS (1)
  1. SYNAGIS [Suspect]
     Indication: ANTIVIRAL PROPHYLAXIS
     Route: 058
     Dates: end: 20080401

REACTIONS (1)
  - RESPIRATORY SYNCYTIAL VIRUS BRONCHIOLITIS [None]
